FAERS Safety Report 14237717 (Version 2)
Quarter: 2017Q4

REPORT INFORMATION
  Report Type: Spontaneous
  Country: KR (occurrence: KR)
  Receive Date: 20171129
  Receipt Date: 20171207
  Transmission Date: 20180321
  Serious: Yes (Death, Life-Threatening, Other)
  Sender: FDA-Public Use
  Company Number: KR-STRIDES ARCOLAB LIMITED-2017SP014194

PATIENT

DRUGS (2)
  1. ACETAZOLAMIDE. [Suspect]
     Active Substance: ACETAZOLAMIDE
     Dosage: 14 MG/KG (INJECTED OVER 2 MINS)
  2. ACETAZOLAMIDE. [Suspect]
     Active Substance: ACETAZOLAMIDE
     Indication: PRODUCT USED FOR UNKNOWN INDICATION
     Dosage: UNK
     Route: 065

REACTIONS (7)
  - Screaming [Unknown]
  - Pupil fixed [Not Recovered/Not Resolved]
  - Generalised tonic-clonic seizure [Recovered/Resolved]
  - Brain death [Fatal]
  - Respiratory rate decreased [Unknown]
  - Coma scale abnormal [Not Recovered/Not Resolved]
  - Cerebral infarction [Not Recovered/Not Resolved]
